FAERS Safety Report 13840932 (Version 1)
Quarter: 2017Q3

REPORT INFORMATION
  Report Type: Spontaneous
  Country: US (occurrence: US)
  Receive Date: 20170807
  Receipt Date: 20170807
  Transmission Date: 20171127
  Serious: Yes (Hospitalization)
  Sender: FDA-Public Use
  Company Number: US-OTSUKA-2017_016829

PATIENT
  Age: 64 Year
  Sex: Female

DRUGS (2)
  1. SAMSCA [Suspect]
     Active Substance: TOLVAPTAN
     Indication: BLOOD OSMOLARITY INCREASED
  2. SAMSCA [Suspect]
     Active Substance: TOLVAPTAN
     Indication: HYPERNATRAEMIA
     Dosage: 45 MG, QD (30 MG + 15 MG)
     Route: 048
     Dates: start: 201611

REACTIONS (2)
  - Hospitalisation [Unknown]
  - Off label use [Unknown]

NARRATIVE: CASE EVENT DATE: 201611
